FAERS Safety Report 6810576-2 (Version None)
Quarter: 2010Q2

REPORT INFORMATION
  Report Type: 
  Country: None (occurrence: None)
  Receive Date: 20100630
  Receipt Date: 20100628
  Transmission Date: 20101027
  Serious: Yes (Death, Hospitalization)
  Sender: FDA-Public Use
  Company Number: US-CEPHALON-2009029801

PATIENT
  Sex: Female
  Weight: 51 kg

DRUGS (4)
  1. TREANDA [Suspect]
     Indication: BREAST CANCER METASTATIC
     Route: 042
     Dates: start: 20090616, end: 20091104
  2. ERLOTINIB [Suspect]
     Indication: BREAST CANCER METASTATIC
     Dates: start: 20090621, end: 20091123
  3. PACLITAXEL [Concomitant]
     Indication: BREAST CANCER METASTATIC
     Dates: start: 20091208
  4. BEVACIZUMAB [Concomitant]
     Indication: BREAST CANCER METASTATIC
     Dates: start: 20091208

REACTIONS (2)
  - PNEUMOCYSTIS JIROVECI PNEUMONIA [None]
  - SEPTIC SHOCK [None]
